FAERS Safety Report 6427520-2 (Version None)
Quarter: 2009Q4

REPORT INFORMATION
  Report Type: 
  Country: None (occurrence: None)
  Receive Date: 20091104
  Receipt Date: 20091027
  Transmission Date: 20100525
  Serious: Yes (Other)
  Sender: FDA-Public Use
  Company Number: PHHY2009AT34763

PATIENT
  Sex: Male

DRUGS (4)
  1. EXELON [Suspect]
     Indication: DEMENTIA
     Dosage: 4.6 MG DAILY
     Route: 062
     Dates: start: 20090610, end: 20090709
  2. EUGLUCON [Concomitant]
     Indication: DIABETES MELLITUS
     Dosage: UNK
     Route: 048
  3. CITALOPRAM HYDROBROMIDE [Concomitant]
     Indication: DEPRESSION
     Dosage: 10 MG
     Route: 048
  4. ASPIRIN [Concomitant]
     Dosage: 100 MG
     Route: 048

REACTIONS (2)
  - BENIGN NEOPLASM [None]
  - GYNAECOMASTIA [None]
